FAERS Safety Report 9204308 (Version 1)
Quarter: 2013Q1

REPORT INFORMATION
  Report Type: Spontaneous
  Country: US (occurrence: None)
  Receive Date: 20120709
  Receipt Date: 20120709
  Transmission Date: 20140127
  Serious: No
  Sender: FDA-Public Use
  Company Number: 2012HGS-003392

PATIENT
  Age: 44 Year
  Sex: Female
  Weight: 57.61 kg

DRUGS (10)
  1. BENLYSTA [Suspect]
     Dosage: 1 IN 28 D
     Route: 041
     Dates: start: 20120315
  2. LOSARTAN/HCTZ(HYZAAR) (HYDROCHLOROTHIAZIDE, LOSARTAN POTASSIUM) [Concomitant]
  3. LOSARTAN (LOSARTAN) (LOSARTAN) [Concomitant]
     Dates: start: 201212
  4. COLBEX (CLOBETASOL PROPIONATE) (CLOBETASOL PROPIONATE) [Concomitant]
  5. PLAQUENIL (HYDROXYCHLOROQUINE SULFATE) (HYDROXYCHLOROQINE SULFATE) [Concomitant]
     Dosage: 2 IN 1 D
  6. PREDNISONE (PREDNISONE) (PREDNISONE) [Concomitant]
  7. SYNTHROID (LEVOTHYROXINE SODIUM) (LEVOTHYROXINE SODIUM) [Concomitant]
  8. VITAMIN D (ERGOCALCIFEROL) (ERGOCALCIFEROL) [Concomitant]
     Dosage: 1 IN 1 WK
  9. AMLODIPINE (AMLODIPINE) (AMLODIPINE) [Concomitant]
     Dosage: ONCE
  10. LEXAPRO (ESCITALOPRAM OXALATE) (ESCITALOPRAM OXALATE) [Suspect]

REACTIONS (4)
  - Dizziness [None]
  - Hypotension [None]
  - Nausea [None]
  - Fatigue [None]
